FAERS Safety Report 6905595-1 (Version None)
Quarter: 2010Q3

REPORT INFORMATION
  Report Type: 
  Country: None (occurrence: None)
  Receive Date: 20100802
  Receipt Date: 20100714
  Transmission Date: 20110219
  Serious: Yes (Other)
  Sender: FDA-Public Use
  Company Number: JPI-P-011420

PATIENT
  Age: 28 Year
  Sex: Female
  Weight: 58.9676 kg

DRUGS (4)
  1. XYREM [Suspect]
     Indication: CATAPLEXY
     Dosage: 4.5 GM (2.25 GM, 2 IN 1 D), ORAL
     Route: 048
     Dates: start: 20050919
  2. OVER THE COUNTER ALLERGY MEDICATION [Concomitant]
  3. DROSPIRENONE AND ETHINYL ESTRADIOL [Concomitant]
  4. AMPHETAMINE AND DEXTROAMPHETAMINE SALTS [Concomitant]

REACTIONS (2)
  - FOOT FRACTURE [None]
  - HYPOAESTHESIA [None]
